FAERS Safety Report 9657866 (Version 1)
Quarter: 2013Q4

REPORT INFORMATION
  Report Type: Spontaneous
  Country: US (occurrence: US)
  Receive Date: 20131030
  Receipt Date: 20131030
  Transmission Date: 20140711
  Serious: No
  Sender: FDA-Public Use
  Company Number: US-ENDO PHARMACEUTICALS INC.-HCDA20130052

PATIENT
  Sex: Female
  Weight: 108.96 kg

DRUGS (1)
  1. HYDROCODONE/ACETAMINOPHEN 10MG/500MG [Suspect]
     Indication: PAIN
     Dosage: 10/500 MG
     Route: 048

REACTIONS (5)
  - Tremor [Recovered/Resolved]
  - Panic attack [Recovered/Resolved]
  - Palpitations [Recovered/Resolved]
  - Disturbance in attention [Recovered/Resolved]
  - Mental impairment [Recovered/Resolved]
